FAERS Safety Report 9306396 (Version 1)
Quarter: 2013Q1

REPORT INFORMATION
  Report Type: Spontaneous
  Country: US (occurrence: None)
  Receive Date: 20121204
  Receipt Date: 20121204
  Transmission Date: 20140127
  Serious: Yes (Life-Threatening, Hospitalization)
  Sender: FDA-Public Use
  Company Number: 141980 1

PATIENT
  Age: 58 Year
  Sex: Female
  Weight: 105 kg

DRUGS (3)
  1. LEUCOVORIN CALCIUM [Suspect]
     Indication: PRODUCT USED FOR UNKNOWN INDICATION
     Route: 042
  2. OXALIPLATIN [Concomitant]
  3. 5-FLUOROURACIL [Concomitant]

REACTIONS (1)
  - Subdural haemorrhage [None]
